FAERS Safety Report 5708215-7 (Version None)
Quarter: 2008Q2

REPORT INFORMATION
  Report Type: 
  Country: None (occurrence: None)
  Receive Date: 20080417
  Receipt Date: 20080407
  Transmission Date: 20081010
  Serious: Yes (Death)
  Sender: FDA-Public Use
  Company Number: US-JNJFOC-20080301976

PATIENT
  Sex: Female
  Weight: 55 kg

DRUGS (8)
  1. TOPAMAX [Suspect]
     Indication: MIGRAINE
     Route: 065
  2. TOPAMAX [Suspect]
     Indication: EPILEPSY
     Route: 065
  3. LORAZEPAM [Concomitant]
     Indication: ANXIETY
  4. AMITRIPTYLINE HCL [Concomitant]
  5. DEPAKOT [Concomitant]
  6. GEODON [Concomitant]
     Indication: DEPRESSION
  7. NEURONTIN [Concomitant]
  8. TENEX [Concomitant]

REACTIONS (1)
  - COMPLETED SUICIDE [None]
